FAERS Safety Report 6081205-3 (Version None)
Quarter: 2009Q1

REPORT INFORMATION
  Report Type: 
  Country: None (occurrence: None)
  Receive Date: 20090213
  Receipt Date: 20090126
  Transmission Date: 20090719
  Serious: Yes (Other)
  Sender: FDA-Public Use
  Company Number: CCR# 09-0003

PATIENT
  Sex: Female

DRUGS (1)
  1. AZO STANDARD MAXIMUM STRENGTH [Suspect]
     Indication: URINARY TRACT INFECTION
     Dosage: 2 TABLETS X 3 TIMES/DAY
     Dates: start: 20090126

REACTIONS (2)
  - HEADACHE [None]
  - VOMITING [None]
